FAERS Safety Report 6045746-7 (Version None)
Quarter: 2009Q1

REPORT INFORMATION
  Report Type: 
  Country: None (occurrence: None)
  Receive Date: 20090121
  Receipt Date: 20051214
  Transmission Date: 20090719
  Serious: Yes (Hospitalization)
  Sender: FDA-Public Use
  Company Number: US-PFIZER INC-2008160117

PATIENT
  Sex: Male
  Weight: 87.98 kg

DRUGS (18)
  1. CELECOXIB [Suspect]
     Indication: POLYP
     Dosage: 200 MG, 2X/DAY
     Route: 048
     Dates: start: 20010214, end: 20020430
  2. ACETYLSALICYLIC ACID [Concomitant]
     Dosage: UNK
  3. CLOPIDOGREL [Concomitant]
     Dosage: UNK
     Dates: start: 19951203
  4. LANSOPRAZOLE [Concomitant]
     Dosage: UNK
     Dates: start: 19990325
  5. SIMVASTATIN [Concomitant]
     Dosage: UNK
     Dates: start: 19981008
  6. CLONAZEPAM [Concomitant]
     Dosage: UNK
     Dates: start: 20001004
  7. ZOLPIDEM TARTRATE [Concomitant]
     Dosage: UNK
     Dates: start: 19980928
  8. METOPROLOL TARTRATE [Concomitant]
     Dosage: UNK
     Dates: start: 20000315
  9. HYDROCHLOROTHIAZIDE [Concomitant]
     Dosage: UNK
     Dates: start: 20000720
  10. GLYCERYL TRINITRATE [Concomitant]
     Dosage: UNK
     Dates: start: 19970419
  11. VITAMIN E [Concomitant]
     Dosage: UNK
     Dates: start: 19970417
  12. SIMETHICONE [Concomitant]
     Dosage: UNK
     Dates: start: 19980311
  13. PSYLLIUM [Concomitant]
     Dosage: UNK
     Dates: start: 20001017
  14. TRAZODONE [Concomitant]
     Dosage: UNK
     Dates: start: 19970417
  15. METHOCARBAMOL [Concomitant]
     Dosage: UNK
     Dates: start: 20010417
  16. NITROGLYCERIN [Concomitant]
     Dosage: UNK
     Dates: start: 20010313
  17. CITALOPRAM HYDROBROMIDE [Concomitant]
     Dosage: UNK
     Dates: start: 20011111
  18. LEVOTHYROXINE [Concomitant]
     Dosage: UNK
     Dates: start: 20010227

REACTIONS (1)
  - ANGINA UNSTABLE [None]
